FAERS Safety Report 17313431 (Version 1)
Quarter: 2020Q1

REPORT INFORMATION
  Report Type: Spontaneous
  Country: DE (occurrence: DE)
  Receive Date: 20200124
  Receipt Date: 20200124
  Transmission Date: 20200409
  Serious: Yes (Life-Threatening, Hospitalization, Disabling, Other)
  Sender: FDA-Public Use
  Company Number: DE-TEVA-2020-DE-1172843

PATIENT
  Age: 0 Day
  Sex: Male
  Weight: 3.2 kg

DRUGS (1)
  1. CLOZAPINE. [Suspect]
     Active Substance: CLOZAPINE
     Indication: SCHIZOPHRENIA
     Dosage: UNCLEAR (MOTHER NO LONGER ELIGIBLE)
     Route: 015
     Dates: start: 20180101, end: 20191231

REACTIONS (2)
  - Foetal exposure during pregnancy [Unknown]
  - Hypoplastic left heart syndrome [Recovered/Resolved with Sequelae]

NARRATIVE: CASE EVENT DATE: 2019
